FAERS Safety Report 9886354 (Version 1)
Quarter: 2014Q1

REPORT INFORMATION
  Report Type: Spontaneous
  Country: US (occurrence: US)
  Receive Date: 20140210
  Receipt Date: 20140210
  Transmission Date: 20141002
  Serious: Yes (Other)
  Sender: FDA-Public Use
  Company Number: US-ACTAVIS-2014-02073

PATIENT
  Sex: 0

DRUGS (3)
  1. ALENDRONATE SODIUM (WATSON LABORATORIES) [Suspect]
     Indication: OSTEOPOROSIS
     Dosage: ^AS PRESCRIBED AND IN A FORESEEABLE MANNER^
     Route: 048
     Dates: start: 201008, end: 201204
  2. FOSAMAX [Suspect]
     Indication: OSTEOPOROSIS
     Dosage: ^AS PRESCRIBED AND IN A FORESEEABLE MANNER^
     Route: 048
     Dates: start: 199810, end: 201212
  3. ALENDRONATE [Suspect]
     Indication: OSTEOPOROSIS
     Dosage: ^AS PRESCRIBED AND IN A FORESEEABLE MANNER^
     Route: 048
     Dates: start: 200712, end: 201206

REACTIONS (4)
  - Lower limb fracture [Unknown]
  - Femur fracture [Unknown]
  - Incorrect drug administration duration [Unknown]
  - Bone disorder [Unknown]
